FAERS Safety Report 15577476 (Version 1)
Quarter: 2018Q4

REPORT INFORMATION
  Report Type: Report from Study
  Country: IT (occurrence: IT)
  Receive Date: 20181102
  Receipt Date: 20181102
  Transmission Date: 20190205
  Serious: Yes (Other)
  Sender: FDA-Public Use
  Company Number: IT-TEVA-2018-IT-971755

PATIENT
  Age: 70 Year
  Sex: Female

DRUGS (1)
  1. LETROZOLO TEVA 2,5 MG COMPRESSE RIVESTITE CON FILM [Suspect]
     Active Substance: LETROZOLE
     Indication: BREAST CANCER
     Route: 065
     Dates: start: 20180301, end: 20180401

REACTIONS (5)
  - Pruritus [Recovered/Resolved]
  - Vertigo [Recovered/Resolved]
  - Retching [Recovered/Resolved]
  - Hot flush [Recovered/Resolved]
  - Alopecia [Recovered/Resolved]
